FAERS Safety Report 23161275 (Version 1)
Quarter: 2023Q4

REPORT INFORMATION
  Report Type: Report from Study
  Country: US (occurrence: US)
  Receive Date: 20231108
  Receipt Date: 20231108
  Transmission Date: 20240110
  Serious: Yes (Other)
  Sender: FDA-Public Use
  Company Number: US-SA-2019SA097519

PATIENT
  Age: 63 Year
  Sex: Female

DRUGS (3)
  1. ELIGLUSTAT [Suspect]
     Active Substance: ELIGLUSTAT
     Indication: Gaucher^s disease
     Dosage: 84 (UNITS UNKNOWN), BID
     Route: 048
     Dates: start: 19930127, end: 20190401
  2. ELIGLUSTAT [Suspect]
     Active Substance: ELIGLUSTAT
     Dosage: 2 DF, QD (84.00)
     Route: 048
     Dates: start: 20190415, end: 20190417
  3. CEREZYME [Concomitant]
     Active Substance: IMIGLUCERASE
     Dosage: UNK QOW

REACTIONS (3)
  - Peripheral swelling [Unknown]
  - Joint swelling [Recovering/Resolving]
  - Condition aggravated [Recovering/Resolving]

NARRATIVE: CASE EVENT DATE: 20190401
